FAERS Safety Report 9876999 (Version 2)
Quarter: 2014Q1

REPORT INFORMATION
  Report Type: Spontaneous
  Country: IT (occurrence: IT)
  Receive Date: 20140206
  Receipt Date: 20140206
  Transmission Date: 20141002
  Serious: Yes (Other)
  Sender: FDA-Public Use
  Company Number: IT-ACCORD-020902

PATIENT
  Age: 57 Year
  Sex: Female
  Weight: 70 kg

DRUGS (2)
  1. CETUXIMAB [Concomitant]
     Indication: METASTASES TO PERITONEUM
     Dosage: 680 MG (FIRST DOSE) THEN AT 400 MG
     Route: 042
     Dates: start: 20131205, end: 20131224
  2. FLUOROURACIL [Suspect]
     Indication: METASTASES TO ABDOMINAL CAVITY
     Dosage: 50 MG/ML, 1 GLASS BOTTLE OF 10 ML
     Route: 042
     Dates: start: 20130409, end: 20131206

REACTIONS (4)
  - Skin toxicity [Unknown]
  - Flushing [Unknown]
  - Erythema [Unknown]
  - Skin ulcer [Unknown]
